FAERS Safety Report 22089726 (Version 1)
Quarter: 2023Q1

REPORT INFORMATION
  Report Type: Spontaneous
  Country: US (occurrence: None)
  Receive Date: 20230311
  Receipt Date: 20230311
  Transmission Date: 20230418
  Serious: Yes (Death)
  Sender: FDA-Public Use
  Company Number: None

PATIENT
  Age: 76 Year
  Sex: Male

DRUGS (1)
  1. ESBRIET [Suspect]
     Active Substance: PIRFENIDONE
     Indication: Idiopathic pulmonary fibrosis
     Dosage: 801MG TID ORAL
     Route: 048
     Dates: start: 20190614, end: 20221101

REACTIONS (2)
  - Disease progression [None]
  - Idiopathic pulmonary fibrosis [None]

NARRATIVE: CASE EVENT DATE: 20230118
